FAERS Safety Report 10408092 (Version 2)
Quarter: 2014Q4

REPORT INFORMATION
  Report Type: Report from Study
  Country: US (occurrence: US)
  Receive Date: 20140825
  Receipt Date: 20141017
  Transmission Date: 20150528
  Serious: Yes (Death, Hospitalization)
  Sender: FDA-Public Use
  Company Number: US-AMGEN-USASP2014064073

PATIENT
  Age: 90 Year
  Sex: Female
  Weight: 55.78 kg

DRUGS (1)
  1. PROLIA [Suspect]
     Active Substance: DENOSUMAB
     Indication: OSTEOPOROSIS POSTMENOPAUSAL
     Dosage: UNK
     Route: 065
     Dates: start: 20130904

REACTIONS (6)
  - Hypotension [Unknown]
  - Vomiting [Unknown]
  - Abdominal pain [Unknown]
  - Death [Fatal]
  - Hypoxia [Unknown]
  - Nausea [Unknown]

NARRATIVE: CASE EVENT DATE: 20140724
